FAERS Safety Report 8869873 (Version 1)
Quarter: 2012Q4

REPORT INFORMATION
  Report Type: 
  Country: JP (occurrence: JP)
  Receive Date: 20121028
  Receipt Date: 20121028
  Transmission Date: 20130627
  Serious: Yes (Other)
  Sender: FDA-Public Use
  Company Number: JP-MERCK-1210JPN009185

PATIENT

DRUGS (2)
  1. GASTER [Suspect]
  2. LIPITOR [Suspect]
     Route: 048

REACTIONS (1)
  - Cell marker increased [Unknown]
